FAERS Safety Report 7093120-7 (Version None)
Quarter: 2010Q4

REPORT INFORMATION
  Report Type: 
  Country: None (occurrence: None)
  Receive Date: 20101110
  Receipt Date: 20101104
  Transmission Date: 20110411
  Serious: Yes (Life-Threatening)
  Sender: FDA-Public Use
  Company Number: JP-ASTRAZENECA-2010SE51768

PATIENT
  Age: 53 Year
  Sex: Male

DRUGS (4)
  1. MEROPEN [Suspect]
     Indication: INFECTION
     Route: 042
     Dates: start: 20100515, end: 20100524
  2. VANCOMYCIN [Suspect]
     Indication: INFECTION
     Dates: end: 20100628
  3. FIRSTCIN [Suspect]
     Indication: INFECTION
     Route: 042
  4. WARFARIN SODIUM [Concomitant]
     Indication: ATRIAL FIBRILLATION
     Route: 048

REACTIONS (2)
  - COAGULATION TIME PROLONGED [None]
  - SUBDURAL HAEMATOMA [None]
